FAERS Safety Report 6579587-9 (Version None)
Quarter: 2010Q1

REPORT INFORMATION
  Report Type: 
  Country: None (occurrence: None)
  Receive Date: 20100212
  Receipt Date: 20100202
  Transmission Date: 20100710
  Serious: Yes (Other)
  Sender: FDA-Public Use
  Company Number: GB-PFIZER INC-2010014147

PATIENT
  Age: 77 Year
  Sex: Male

DRUGS (1)
  1. SUTENT [Suspect]

REACTIONS (4)
  - BALANCE DISORDER [None]
  - FAECAL INCONTINENCE [None]
  - PAIN IN EXTREMITY [None]
  - URINARY RETENTION [None]
